FAERS Safety Report 5282264-8 (Version None)
Quarter: 2007Q1

REPORT INFORMATION
  Report Type: 
  Country: None (occurrence: None)
  Receive Date: 20070330
  Receipt Date: 20070320
  Transmission Date: 20070707
  Serious: Yes (Hospitalization, Other)
  Sender: FDA-Public Use
  Company Number: US-PFIZER INC-2007023041

PATIENT
  Sex: Male
  Weight: 89.8 kg

DRUGS (4)
  1. CELEBREX [Suspect]
     Indication: ARTHRALGIA
  2. CELEBREX [Suspect]
     Indication: BACK PAIN
  3. BEXTRA [Suspect]
     Indication: ARTHRALGIA
  4. BEXTRA [Suspect]
     Indication: BACK PAIN

REACTIONS (8)
  - ALOPECIA [None]
  - ARTHROPATHY [None]
  - BACK DISORDER [None]
  - CEREBROVASCULAR ACCIDENT [None]
  - COMPLEX REGIONAL PAIN SYNDROME [None]
  - NEUROPATHY [None]
  - ONYCHOMADESIS [None]
  - SKIN DISCOLOURATION [None]
